FAERS Safety Report 18672671 (Version 10)
Quarter: 2021Q4

REPORT INFORMATION
  Report Type: Report from Study
  Country: US (occurrence: US)
  Receive Date: 20201228
  Receipt Date: 20211103
  Transmission Date: 20220303
  Serious: Yes (Other)
  Sender: FDA-Public Use
  Company Number: NVSC2020US340812

PATIENT
  Age: 72 Year
  Sex: Male
  Weight: 250 kg

DRUGS (3)
  1. ENTRESTO [Suspect]
     Active Substance: SACUBITRIL\VALSARTAN
     Indication: Product used for unknown indication
     Dosage: 24.26 MG, BID
     Route: 048
     Dates: start: 20201221
  2. CARVEDILOL [Suspect]
     Active Substance: CARVEDILOL
     Indication: Product used for unknown indication
     Dosage: UNK
     Route: 065
  3. JANUVIA [Concomitant]
     Active Substance: SITAGLIPTIN PHOSPHATE
     Indication: Product used for unknown indication
     Dosage: UNK
     Route: 065

REACTIONS (14)
  - Renal impairment [Unknown]
  - Arterial occlusive disease [Unknown]
  - Feeling abnormal [Unknown]
  - Weight decreased [Unknown]
  - Heart rate abnormal [Unknown]
  - Amnesia [Not Recovered/Not Resolved]
  - Myalgia [Unknown]
  - Fatigue [Unknown]
  - Dyspnoea [Not Recovered/Not Resolved]
  - Dizziness [Unknown]
  - Hypotension [Unknown]
  - Flatulence [Unknown]
  - Dyspepsia [Unknown]
  - Intentional dose omission [Unknown]

NARRATIVE: CASE EVENT DATE: 20201221
